FAERS Safety Report 8986730 (Version 3)
Quarter: 2013Q3

REPORT INFORMATION
  Report Type: Report from Study
  Country: AU (occurrence: AU)
  Receive Date: 20121227
  Receipt Date: 20130819
  Transmission Date: 20140515
  Serious: Yes (Hospitalization, Other)
  Sender: FDA-Public Use
  Company Number: PHHY2012AU118902

PATIENT
  Sex: Male

DRUGS (2)
  1. SANDOSTATIN LAR [Suspect]
     Indication: CARCINOID SYNDROME
     Dosage: 20 MG, UNK
     Route: 030
     Dates: start: 20120717
  2. SANDOSTATIN LAR [Suspect]
     Dosage: UNK UKN, UNK

REACTIONS (7)
  - Gastrointestinal infection [Recovered/Resolved]
  - Renal failure acute [Recovered/Resolved]
  - Diarrhoea [Recovered/Resolved]
  - Pyrexia [Unknown]
  - Lethargy [Unknown]
  - Dehydration [Unknown]
  - Urine output decreased [Unknown]
